FAERS Safety Report 23988960 (Version 1)
Quarter: 2024Q2

REPORT INFORMATION
  Report Type: Spontaneous
  Country: JP (occurrence: JP)
  Receive Date: 20240619
  Receipt Date: 20240619
  Transmission Date: 20240715
  Serious: Yes (Other)
  Sender: FDA-Public Use
  Company Number: JP-Accord-430529

PATIENT
  Age: 68 Year
  Sex: Male

DRUGS (6)
  1. OXALIPLATIN [Suspect]
     Active Substance: OXALIPLATIN
     Indication: Gastric cancer stage IV
     Dosage: RECEIVING 13 CYCLES
  2. TS-1 [Suspect]
     Active Substance: GIMERACIL\OTERACIL POTASSIUM\TEGAFUR
     Indication: Gastric cancer stage IV
     Dosage: RECEIVING 13 CYCLES
  3. NIVOLUMAB [Concomitant]
     Active Substance: NIVOLUMAB
     Indication: Metastases to liver
     Dosage: RECEIVING 13 CYCLES
  4. NIVOLUMAB [Concomitant]
     Active Substance: NIVOLUMAB
     Indication: Gastric cancer stage IV
     Dosage: RECEIVING 13 CYCLES
  5. TS-1 [Suspect]
     Active Substance: GIMERACIL\OTERACIL POTASSIUM\TEGAFUR
     Indication: Metastases to liver
     Dosage: RECEIVING 13 CYCLES
  6. OXALIPLATIN [Suspect]
     Active Substance: OXALIPLATIN
     Indication: Metastases to liver
     Dosage: RECEIVING 13 CYCLES

REACTIONS (5)
  - Thrombocytopenia [Unknown]
  - Venoocclusive liver disease [Unknown]
  - Hepatic function abnormal [Unknown]
  - Neuropathy peripheral [Unknown]
  - Drug-induced liver injury [Recovering/Resolving]
